FAERS Safety Report 21750646 (Version 3)
Quarter: 2023Q1

REPORT INFORMATION
  Report Type: Report from Study
  Country: US (occurrence: US)
  Receive Date: 20221219
  Receipt Date: 20230313
  Transmission Date: 20230418
  Serious: Yes (Death, Life-Threatening, Hospitalization)
  Sender: FDA-Public Use
  Company Number: US-ABBVIE-4197537

PATIENT
  Age: 76 Year
  Sex: Male
  Weight: 83 kg

DRUGS (3)
  1. VENETOCLAX [Suspect]
     Active Substance: VENETOCLAX
     Indication: Acute myeloid leukaemia
     Dosage: SINGLE
     Route: 048
     Dates: start: 202208
  2. VENETOCLAX [Suspect]
     Active Substance: VENETOCLAX
     Indication: Acute myeloid leukaemia
     Dosage: DOSE REDUCED, (ON 1-28 DAYS) (CYCLE 1)
     Route: 048
     Dates: start: 20221017, end: 20221031
  3. CEDAZURIDINE\DECITABINE [Concomitant]
     Active Substance: CEDAZURIDINE\DECITABINE
     Indication: Acute myeloid leukaemia
     Dosage: ON DAYS 1-5, EVERY 28 DAYS (CYCLE 1)
     Route: 048
     Dates: start: 20220805, end: 20221021

REACTIONS (1)
  - Haemolytic anaemia [Fatal]

NARRATIVE: CASE EVENT DATE: 20221106
